FAERS Safety Report 22230652 (Version 1)
Quarter: 2023Q2

REPORT INFORMATION
  Report Type: Spontaneous
  Country: DE (occurrence: DE)
  Receive Date: 20230420
  Receipt Date: 20230420
  Transmission Date: 20230722
  Serious: Yes (Other)
  Sender: FDA-Public Use
  Company Number: DE-009507513-2304DEU005849

PATIENT
  Sex: Male

DRUGS (1)
  1. ZINPLAVA [Suspect]
     Active Substance: BEZLOTOXUMAB
     Indication: Prophylaxis
     Dosage: UNK

REACTIONS (4)
  - Colitis ulcerative [Unknown]
  - Liver transplant [Unknown]
  - Symptom recurrence [Unknown]
  - False negative investigation result [Unknown]

NARRATIVE: CASE EVENT DATE: 20230101
